FAERS Safety Report 4902965-8 (Version None)
Quarter: 2006Q1

REPORT INFORMATION
  Report Type: 
  Country: None (occurrence: None)
  Receive Date: 20060207
  Receipt Date: 20060126
  Transmission Date: 20060701
  Serious: Yes (Other)
  Sender: FDA-Public Use
  Company Number: 2006CG00198

PATIENT
  Age: 68 Year
  Sex: Male

DRUGS (4)
  1. ZESTRIL [Suspect]
     Indication: HYPERTENSION
     Route: 048
  2. TAHOR [Concomitant]
  3. PLAVIX [Concomitant]
  4. CARDENSIEL [Concomitant]

REACTIONS (5)
  - ANXIETY [None]
  - COGNITIVE DISORDER [None]
  - MAJOR DEPRESSION [None]
  - MOTOR DYSFUNCTION [None]
  - THERAPY NON-RESPONDER [None]
